FAERS Safety Report 22630348 (Version 1)
Quarter: 2023Q2

REPORT INFORMATION
  Report Type: Report from Study
  Country: ES (occurrence: ES)
  Receive Date: 20230622
  Receipt Date: 20230622
  Transmission Date: 20230722
  Serious: Yes (Other)
  Sender: FDA-Public Use
  Company Number: None

PATIENT
  Age: 86 Year
  Sex: Male

DRUGS (2)
  1. SIMVASTATIN [Suspect]
     Active Substance: SIMVASTATIN
     Indication: Product used for unknown indication
     Dosage: SIMVASTATINA (1023A)
     Route: 065
     Dates: start: 20200120
  2. CLOPIDOGREL [Suspect]
     Active Substance: CLOPIDOGREL BISULFATE
     Indication: Product used for unknown indication
     Dosage: CLOPIDOGREL (7300A)
     Route: 065
     Dates: start: 20200120

REACTIONS (2)
  - Infarction [Unknown]
  - Respiratory tract infection [Unknown]

NARRATIVE: CASE EVENT DATE: 20200124
